FAERS Safety Report 6737008-7 (Version None)
Quarter: 2010Q2

REPORT INFORMATION
  Report Type: 
  Country: None (occurrence: None)
  Receive Date: 20100523
  Receipt Date: 20100309
  Transmission Date: 20101027
  Serious: No
  Sender: FDA-Public Use
  Company Number: US-ALLERGAN-1003144US

PATIENT
  Sex: Female

DRUGS (4)
  1. COMBIGAN [Suspect]
     Indication: GLAUCOMA
     Dosage: UNK
     Dates: start: 20100225
  2. LUMIGAN [Concomitant]
     Indication: GLAUCOMA
  3. ZOCOR [Concomitant]
  4. PAXIL [Concomitant]

REACTIONS (2)
  - EYE IRRITATION [None]
  - LACRIMATION INCREASED [None]
